FAERS Safety Report 7290218-5 (Version None)
Quarter: 2011Q1

REPORT INFORMATION
  Report Type: 
  Country: None (occurrence: None)
  Receive Date: 20110214
  Receipt Date: 20110209
  Transmission Date: 20110831
  Serious: Yes (Death, Other)
  Sender: FDA-Public Use
  Company Number: PHHY2011FR10638

PATIENT
  Sex: Male

DRUGS (3)
  1. CRESTOR [Concomitant]
     Dosage: UNK
  2. RASILEZ HCT [Suspect]
     Indication: HYPERTENSION
     Dosage: 1 DF, DAILY
     Dates: start: 20101201
  3. ASPIRIN [Concomitant]
     Dosage: UNK

REACTIONS (2)
  - HAEMORRHAGIC STROKE [None]
  - ANEURYSM [None]
